FAERS Safety Report 8871895 (Version 3)
Quarter: 2013Q3

REPORT INFORMATION
  Report Type: Report from Study
  Country: DE (occurrence: DE)
  Receive Date: 20121029
  Receipt Date: 20130904
  Transmission Date: 20140515
  Serious: Yes (Hospitalization)
  Sender: FDA-Public Use
  Company Number: PHHY2012DE096104

PATIENT
  Age: 74 Year
  Sex: Female

DRUGS (4)
  1. AMN107 [Suspect]
     Indication: CHRONIC MYELOID LEUKAEMIA
     Dosage: 600 MG, QD
     Route: 048
     Dates: start: 20120906
  2. TRAMADOL [Concomitant]
     Indication: ARTHRALGIA
     Dosage: 100 MG, QD
     Route: 048
  3. VALSARTAN [Concomitant]
     Indication: HYPERTENSION
     Dosage: 160 MG, DAILY
  4. ALLOPURINOL [Concomitant]
     Indication: PROPHYLAXIS
     Dosage: 300 MG, DAILY

REACTIONS (1)
  - Sciatica [Unknown]
